FAERS Safety Report 6705169-1 (Version None)
Quarter: 2010Q2

REPORT INFORMATION
  Report Type: 
  Country: None (occurrence: None)
  Receive Date: 20100430
  Receipt Date: 20100219
  Transmission Date: 20101027
  Serious: No
  Sender: FDA-Public Use
  Company Number: US-ASTRAZENECA-2010SE07350

PATIENT
  Sex: Male

DRUGS (1)
  1. NEXIUM [Suspect]
     Indication: ULCER
     Route: 048
     Dates: start: 20100201

REACTIONS (3)
  - EPISTAXIS [None]
  - TONGUE DISCOLOURATION [None]
  - TOOTH DISCOLOURATION [None]
